FAERS Safety Report 17579884 (Version 1)
Quarter: 2020Q1

REPORT INFORMATION
  Report Type: Spontaneous
  Country: US (occurrence: US)
  Receive Date: 20200320
  Receipt Date: 20200320
  Transmission Date: 20200409
  Serious: Yes (Hospitalization)
  Sender: FDA-Public Use
  Company Number: None

PATIENT
  Sex: Female

DRUGS (2)
  1. HUMIRA [Suspect]
     Active Substance: ADALIMUMAB
     Indication: COLITIS ULCERATIVE
     Dosage: ?          OTHER STRENGTH:40MG/0.4ML;OTHER FREQUENCY:EVERY 2 WEEKS;?
     Dates: start: 20170112, end: 20200218
  2. HUMIRA [Suspect]
     Active Substance: ADALIMUMAB
     Indication: PSORIASIS
     Dosage: ?          OTHER STRENGTH:40MG/0.4ML;OTHER FREQUENCY:EVERY 2 WEEKS;?
     Dates: start: 20170112, end: 20200218

REACTIONS (3)
  - Immunosuppression [None]
  - Urinary tract infection [None]
  - Septic shock [None]
